FAERS Safety Report 7347252-6 (Version None)
Quarter: 2011Q1

REPORT INFORMATION
  Report Type: 
  Country: None (occurrence: None)
  Receive Date: 20110303
  Receipt Date: 20110224
  Transmission Date: 20110831
  Serious: Yes (Other)
  Sender: FDA-Public Use
  Company Number: TRP_07585_2011

PATIENT
  Sex: Female

DRUGS (2)
  1. RIBASPHERE [Suspect]
     Indication: HEPATITIS
     Dates: start: 20110203
  2. PEG-INTRON [Suspect]
     Dates: start: 20110203

REACTIONS (3)
  - WEIGHT DECREASED [None]
  - DIZZINESS [None]
  - BLOOD PRESSURE DECREASED [None]
